FAERS Safety Report 6286763-1 (Version None)
Quarter: 2009Q3

REPORT INFORMATION
  Report Type: 
  Country: None (occurrence: None)
  Receive Date: 20090728
  Receipt Date: 20090717
  Transmission Date: 20100115
  Serious: Yes (Hospitalization)
  Sender: FDA-Public Use
  Company Number: FR-PFIZER INC-2009224672

PATIENT
  Age: 65 Year

DRUGS (1)
  1. SUTENT [Suspect]
     Indication: TRANSITIONAL CELL CARCINOMA
     Dosage: 50 MG, UNK
     Route: 048
     Dates: start: 20090326, end: 20090422

REACTIONS (1)
  - ISCHAEMIA [None]
